FAERS Safety Report 7564841-4 (Version None)
Quarter: 2011Q2

REPORT INFORMATION
  Report Type: 
  Country: None (occurrence: None)
  Receive Date: 20110622
  Receipt Date: 20110103
  Transmission Date: 20111010
  Serious: Yes (Death)
  Sender: FDA-Public Use
  Company Number: US-MYLANLABS-2011S1000035

PATIENT
  Age: 69 Year
  Sex: Male

DRUGS (6)
  1. CLOZAPINE [Suspect]
     Route: 048
  2. COMTAN [Concomitant]
     Route: 048
  3. LORAZEPAM [Concomitant]
     Route: 048
  4. CLOZAPINE [Suspect]
     Route: 048
  5. CARBIDOPA + LEVODOPA [Concomitant]
     Route: 048
  6. ROPINIROLE [Concomitant]
     Route: 048

REACTIONS (1)
  - PARKINSON'S DISEASE [None]
